FAERS Safety Report 4784814-4 (Version None)
Quarter: 2005Q3

REPORT INFORMATION
  Report Type: 
  Country: None (occurrence: None)
  Receive Date: 20050930
  Receipt Date: 20050921
  Transmission Date: 20060218
  Serious: Yes (Death, Hospitalization)
  Sender: FDA-Public Use
  Company Number: US-SANOFI-SYNTHELABO-A03200503049

PATIENT
  Age: 63 Year
  Sex: Male

DRUGS (3)
  1. AMBIEN [Suspect]
     Indication: DRUG USE FOR UNKNOWN INDICATION
     Dosage: UNK
     Route: 048
  2. ACETAMINOPHEN/BUTALBITAL/CAFFEINE [Suspect]
     Dosage: UNK
     Route: 048
  3. CLONAZEPAM [Suspect]
     Indication: DRUG USE FOR UNKNOWN INDICATION
     Dosage: UNK
     Route: 048

REACTIONS (10)
  - ANOXIC ENCEPHALOPATHY [None]
  - DEPRESSED LEVEL OF CONSCIOUSNESS [None]
  - GASTROINTESTINAL TUBE INSERTION [None]
  - HYPERTENSION [None]
  - IATROGENIC INJURY [None]
  - INTENTIONAL MISUSE [None]
  - OVERDOSE [None]
  - PNEUMONITIS [None]
  - PROCEDURAL COMPLICATION [None]
  - TACHYCARDIA [None]
